FAERS Safety Report 17292273 (Version 1)
Quarter: 2020Q1

REPORT INFORMATION
  Report Type: Report from Study
  Country: US (occurrence: US)
  Receive Date: 20200121
  Receipt Date: 20200121
  Transmission Date: 20200409
  Serious: Yes (Other)
  Sender: FDA-Public Use
  Company Number: US-BAYER-2019-230481

PATIENT
  Age: 66 Year
  Sex: Female
  Weight: 77.55 kg

DRUGS (3)
  1. ADEMPAS [Suspect]
     Active Substance: RIOCIGUAT
     Indication: PULMONARY ARTERIAL HYPERTENSION
     Dosage: 2.5 MG, TID
     Route: 048
  2. ADEMPAS [Suspect]
     Active Substance: RIOCIGUAT
     Indication: PULMONARY ARTERIAL HYPERTENSION
     Dosage: UNK
     Dates: start: 20190130
  3. OPSUMIT [Concomitant]
     Active Substance: MACITENTAN
     Dosage: UNK

REACTIONS (8)
  - Lower respiratory tract infection [None]
  - Nasopharyngitis [None]
  - Sinus headache [None]
  - Productive cough [None]
  - Epistaxis [None]
  - Arthralgia [None]
  - Nasal congestion [None]
  - Haemoptysis [None]

NARRATIVE: CASE EVENT DATE: 2019
